APPROVED DRUG PRODUCT: BUDESONIDE
Active Ingredient: BUDESONIDE
Strength: 9MG
Dosage Form/Route: TABLET, EXTENDED RELEASE;ORAL
Application: A205457 | Product #001 | TE Code: AB
Applicant: ACTAVIS LABORATORIES FL INC
Approved: Jul 3, 2018 | RLD: No | RS: No | Type: RX